FAERS Safety Report 8903299 (Version 1)
Quarter: 2012Q4

REPORT INFORMATION
  Report Type: 
  Country: US (occurrence: US)
  Receive Date: 20121113
  Receipt Date: 20121113
  Transmission Date: 20130627
  Serious: Yes (Hospitalization, Other)
  Sender: FDA-Public Use
  Company Number: US-PFIZER INC-2012281580

PATIENT
  Sex: Female
  Weight: 60.32 kg

DRUGS (4)
  1. CALAN [Suspect]
     Indication: BLOOD PRESSURE ABNORMAL
     Dosage: 120 mg, 3x/day
     Route: 048
  2. VASOTEC [Concomitant]
     Indication: HEART DISORDER
     Dosage: 1.25 mg, daily
  3. SYNTHROID [Concomitant]
     Indication: THYROID DISORDER
     Dosage: 0.075 mg, daily
  4. TYLENOL [Concomitant]
     Indication: BLOOD PRESSURE ABNORMAL
     Dosage: 500 mg, as needed

REACTIONS (1)
  - Meningioma [Unknown]
